FAERS Safety Report 5835304-9 (Version None)
Quarter: 2008Q3

REPORT INFORMATION
  Report Type: 
  Country: None (occurrence: None)
  Receive Date: 20080804
  Receipt Date: 20080728
  Transmission Date: 20090109
  Serious: Yes (Death, Hospitalization)
  Sender: FDA-Public Use
  Company Number: 2008US000263

PATIENT
  Age: 65 Year
  Sex: Female

DRUGS (14)
  1. PROGRAF [Suspect]
     Indication: LIVER TRANSPLANT
     Dosage: 1 MG, BID, ORAL;  3 MG, BID, ORAL
     Route: 048
     Dates: start: 20070412, end: 20070929
  2. PROGRAF [Suspect]
     Indication: LIVER TRANSPLANT
     Dosage: 1 MG, BID, ORAL;  3 MG, BID, ORAL
     Route: 048
     Dates: start: 20070412, end: 20071216
  3. MYCOPHENOLATE MOFETIL [Suspect]
     Indication: LIVER TRANSPLANT
     Dosage: 750 MG, BID, ORAL
     Route: 048
     Dates: start: 20070405, end: 20071216
  4. LASIX [Concomitant]
  5. NEXIUM [Concomitant]
  6. TOPROL-XL [Concomitant]
  7. AMARYL [Concomitant]
  8. NORVASC [Concomitant]
  9. SORAFENIB (SORAFENIB) [Concomitant]
  10. SIMETHICONE (SIMETICONE) [Concomitant]
  11. MULTI-VITAMINS [Concomitant]
  12. IMODIUM A-D [Concomitant]
  13. FERROUS SULFATE TAB [Concomitant]
  14. NYSTATIN [Concomitant]

REACTIONS (3)
  - DYSPNOEA [None]
  - GENERAL PHYSICAL HEALTH DETERIORATION [None]
  - HEPATIC CANCER METASTATIC [None]
